FAERS Safety Report 6269485-2 (Version None)
Quarter: 2009Q3

REPORT INFORMATION
  Report Type: 
  Country: None (occurrence: None)
  Receive Date: 20090714
  Receipt Date: 20090702
  Transmission Date: 20100115
  Serious: Yes (Other)
  Sender: FDA-Public Use
  Company Number: WAES 0907USA01368

PATIENT

DRUGS (2)
  1. HYDROCORTONE [Suspect]
     Dosage: 200 MG/DAILY IV
     Route: 042
  2. CYCLOSPORINE [Concomitant]

REACTIONS (1)
  - TRANSPLANT REJECTION [None]
